FAERS Safety Report 5008907-1 (Version None)
Quarter: 2006Q2

REPORT INFORMATION
  Report Type: 
  Country: None (occurrence: None)
  Receive Date: 20060518
  Receipt Date: 20060503
  Transmission Date: 20061013
  Serious: Yes (Other)
  Sender: FDA-Public Use
  Company Number: CIP06000910

PATIENT
  Age: 63 Year
  Sex: Female
  Weight: 73.5 kg

DRUGS (12)
  1. ACTONEL [Suspect]
     Indication: OSTEOPENIA
     Dosage: 35 MG ONCE WEEKLY, ORAL
     Route: 048
     Dates: start: 20040707, end: 20051206
  2. VICODIN ES [Suspect]
     Indication: ARTHRITIS
     Dosage: SEE IMAGE
     Route: 048
     Dates: start: 20040826, end: 20050915
  3. VICODIN ES [Suspect]
     Indication: ARTHRITIS
     Dosage: SEE IMAGE
     Route: 048
     Dates: start: 20040726
  4. VICODIN ES [Suspect]
     Indication: ARTHRITIS
     Dosage: SEE IMAGE
     Route: 048
     Dates: start: 20050916
  5. BEXTRA [Suspect]
     Indication: ARTHRITIS
     Dosage: SEE IMAGE
     Route: 048
     Dates: start: 20040326, end: 20040701
  6. BEXTRA [Suspect]
     Indication: ARTHRITIS
     Dosage: SEE IMAGE
     Route: 048
     Dates: start: 20041011
  7. ALPRAZOLAM [Concomitant]
  8. KEFLEX [Concomitant]
  9. LEXAPRO [Concomitant]
  10. AMBIEN [Concomitant]
  11. RELAFEN [Concomitant]
  12. TRAZODONE HCL [Concomitant]

REACTIONS (18)
  - ABDOMINAL PAIN UPPER [None]
  - ANXIETY [None]
  - ARTHRALGIA [None]
  - BACK PAIN [None]
  - CONDITION AGGRAVATED [None]
  - DEPRESSION [None]
  - DIARRHOEA [None]
  - DISLOCATION OF JOINT PROSTHESIS [None]
  - DRUG INEFFECTIVE [None]
  - EAR DISORDER [None]
  - FACIAL PAIN [None]
  - MUSCULOSKELETAL STIFFNESS [None]
  - OSTEONECROSIS [None]
  - PAIN [None]
  - PRURITUS [None]
  - SCOLIOSIS [None]
  - SUICIDAL IDEATION [None]
  - TOOTH LOSS [None]
